FAERS Safety Report 7174067-4 (Version None)
Quarter: 2010Q4

REPORT INFORMATION
  Report Type: 
  Country: None (occurrence: None)
  Receive Date: 20101202
  Receipt Date: 20101116
  Transmission Date: 20110411
  Serious: Yes (Other)
  Sender: FDA-Public Use
  Company Number: 2010SP060849

PATIENT
  Sex: Male

DRUGS (1)
  1. PEGINTRON (PEGINTERFERON ALFA-2B /01543001/) [Suspect]
     Indication: HEPATITIS C

REACTIONS (4)
  - DEMYELINATION [None]
  - DIZZINESS [None]
  - THERAPEUTIC RESPONSE DELAYED [None]
  - VOMITING [None]
